FAERS Safety Report 11651972 (Version 6)
Quarter: 2015Q4

REPORT INFORMATION
  Report Type: Report from Study
  Country: CA (occurrence: CA)
  Receive Date: 20151022
  Receipt Date: 20151103
  Transmission Date: 20160304
  Serious: Yes (Other)
  Sender: FDA-Public Use
  Company Number: PHHY2015CA125313

PATIENT
  Sex: Female

DRUGS (4)
  1. ACLASTA [Suspect]
     Active Substance: ZOLEDRONIC ACID
     Route: 065
     Dates: start: 20141015, end: 20141015
  2. OMEPRAZOLE. [Concomitant]
     Active Substance: OMEPRAZOLE
     Indication: REFLUX GASTRITIS
     Dosage: 40 MG, QD
     Route: 048
  3. ACLASTA [Suspect]
     Active Substance: ZOLEDRONIC ACID
     Indication: OSTEOPOROSIS
     Dosage: 5 MG, UNK
     Route: 042
     Dates: start: 20120418
  4. ACLASTA [Suspect]
     Active Substance: ZOLEDRONIC ACID
     Dates: start: 20130517

REACTIONS (4)
  - Hypertension [Not Recovered/Not Resolved]
  - Hernia [Not Recovered/Not Resolved]
  - Drug ineffective [Unknown]
  - Diverticulitis [Not Recovered/Not Resolved]
